FAERS Safety Report 25848561 (Version 1)
Quarter: 2025Q3

REPORT INFORMATION
  Report Type: Spontaneous
  Country: EU (occurrence: EU)
  Receive Date: 20250925
  Receipt Date: 20250925
  Transmission Date: 20251020
  Serious: Yes (Other)
  Sender: PFIZER
  Company Number: None

PATIENT
  Age: 35 Year
  Sex: Female
  Weight: 58 kg

DRUGS (1)
  1. PAXLOVID [Suspect]
     Active Substance: NIRMATRELVIR\RITONAVIR
     Indication: COVID-19 treatment
     Route: 048
     Dates: start: 20250909, end: 20250910

REACTIONS (6)
  - Depressed level of consciousness [Recovered/Resolved]
  - Delusion [Recovered/Resolved]
  - Dizziness [Recovered/Resolved]
  - Hypoaesthesia [Recovered/Resolved]
  - Discomfort [Recovered/Resolved]
  - Sensory loss [Recovered/Resolved]

NARRATIVE: CASE EVENT DATE: 20250909
